FAERS Safety Report 7974098-8 (Version None)
Quarter: 2011Q4

REPORT INFORMATION
  Report Type: 
  Country: None (occurrence: None)
  Receive Date: 20111213
  Receipt Date: 20111202
  Transmission Date: 20120403
  Serious: Yes (Hospitalization, Disabling)
  Sender: FDA-Public Use
  Company Number: PHHO2011CH08466

PATIENT
  Sex: Male
  Weight: 74 kg

DRUGS (4)
  1. RIBAVIRIN [Suspect]
  2. PROGRAF [Suspect]
     Indication: LIVER TRANSPLANT
     Dosage: 20 G, PER DAY
     Route: 048
     Dates: start: 20100128
  3. NO TREATMENT RECEIVED [Suspect]
     Indication: LIVER TRANSPLANT
     Dosage: NO TREATMENT
  4. PEGINTERFERON ALFA-2A [Suspect]

REACTIONS (6)
  - TUBERCULOSIS [None]
  - TUBERCULOSIS OF EYE [None]
  - EXOPHTHALMOS [None]
  - OPHTHALMOPLEGIA [None]
  - GAZE PALSY [None]
  - CONCOMITANT DISEASE PROGRESSION [None]
